FAERS Safety Report 25439484 (Version 1)
Quarter: 2025Q2

REPORT INFORMATION
  Report Type: Report from Study
  Country: CN (occurrence: CN)
  Receive Date: 20250616
  Receipt Date: 20250616
  Transmission Date: 20250717
  Serious: Yes (Other)
  Sender: ROCHE
  Company Number: CN-ROCHE-10000308682

PATIENT

DRUGS (4)
  1. RITUXIMAB [Suspect]
     Active Substance: RITUXIMAB
     Indication: Diffuse large B-cell lymphoma
     Route: 042
  2. ORELABRUTINIB [Suspect]
     Active Substance: ORELABRUTINIB
     Indication: Diffuse large B-cell lymphoma
     Route: 065
  3. METHOTREXATE [Suspect]
     Active Substance: METHOTREXATE
     Indication: Diffuse large B-cell lymphoma
     Route: 065
  4. LEUCOVORIN [Concomitant]
     Active Substance: LEUCOVORIN\LEUCOVORIN CALCIUM

REACTIONS (21)
  - Anaemia [Unknown]
  - Lymphocyte count decreased [Unknown]
  - Neutrophil count decreased [Unknown]
  - Platelet count decreased [Unknown]
  - Febrile neutropenia [Unknown]
  - Hypokalaemia [Unknown]
  - Alanine aminotransferase increased [Unknown]
  - Aspartate aminotransferase increased [Unknown]
  - Hyponatraemia [Unknown]
  - Blood fibrinogen decreased [Unknown]
  - Arthralgia [Unknown]
  - Acute kidney injury [Unknown]
  - Cough [Unknown]
  - Headache [Unknown]
  - Hyperglycaemia [Unknown]
  - Vomiting [Unknown]
  - Dyspnoea [Unknown]
  - Abdominal pain [Unknown]
  - Rash [Unknown]
  - Pneumonia [Unknown]
  - Herpes zoster [Unknown]
